FAERS Safety Report 20378044 (Version 2)
Quarter: 2022Q1

REPORT INFORMATION
  Report Type: Spontaneous
  Country: US (occurrence: US)
  Receive Date: 20220126
  Receipt Date: 20220330
  Transmission Date: 20220423
  Serious: No
  Sender: FDA-Public Use
  Company Number: US-ALLERGAN-2143489US

PATIENT
  Sex: Female

DRUGS (1)
  1. UBRELVY [Suspect]
     Active Substance: UBROGEPANT
     Indication: Migraine
     Dosage: 50 MG, PRN
     Route: 048
     Dates: end: 2021

REACTIONS (3)
  - Menstruation irregular [Recovered/Resolved]
  - Menstruation delayed [Recovered/Resolved]
  - Hyperacusis [Recovered/Resolved]
